FAERS Safety Report 8772023 (Version 3)
Quarter: 2013Q1

REPORT INFORMATION
  Report Type: Report from Study
  Country: JP (occurrence: JP)
  Receive Date: 20120906
  Receipt Date: 20130304
  Transmission Date: 20140127
  Serious: Yes (Other)
  Sender: FDA-Public Use
  Company Number: JP-009507513-2012SP034176

PATIENT
  Age: 68 Year
  Sex: Female
  Weight: 49 kg

DRUGS (9)
  1. PEGINTERFERON ALFA-2B [Suspect]
     Indication: CHRONIC HEPATITIS C
     Dosage: 1.5 MICROGRAM PER KILOGRAM, QW
     Route: 058
     Dates: start: 20120221, end: 20120619
  2. PEGINTERFERON ALFA-2B [Suspect]
     Dosage: 1.3 MICROGRAM PER KILOGRAM, QW
     Route: 058
     Dates: start: 20120626
  3. REBETOL [Suspect]
     Indication: CHRONIC HEPATITIS C
     Dosage: 600 MG, QD
     Route: 048
     Dates: start: 20120221, end: 20120312
  4. REBETOL [Suspect]
     Dosage: 400 MG, QD
     Route: 048
     Dates: start: 20120313, end: 20120327
  5. REBETOL [Suspect]
     Dosage: 200 MG, QD
     Route: 048
     Dates: start: 20120328, end: 20120501
  6. REBETOL [Suspect]
     Dosage: 400 MG, QD
     Route: 048
     Dates: start: 20120502, end: 20120625
  7. REBETOL [Suspect]
     Dosage: 500 MG/DAY, 2 T OT 3 T
     Route: 048
     Dates: start: 20120626
  8. TELAVIC [Suspect]
     Indication: CHRONIC HEPATITIS C
     Dosage: 2250 MG, QD
     Route: 048
     Dates: start: 20120221, end: 20120402
  9. TELAVIC [Suspect]
     Dosage: 1500 MG, QD
     Route: 048
     Dates: start: 20120403, end: 20120515

REACTIONS (3)
  - Hyperuricaemia [Recovering/Resolving]
  - Rash [Recovering/Resolving]
  - Haemoglobin decreased [Not Recovered/Not Resolved]
